FAERS Safety Report 23728146 (Version 1)
Quarter: 2024Q2

REPORT INFORMATION
  Report Type: Spontaneous
  Country: US (occurrence: None)
  Receive Date: 20240410
  Receipt Date: 20240410
  Transmission Date: 20240716
  Serious: Yes (Hospitalization)
  Sender: FDA-Public Use
  Company Number: None

PATIENT
  Sex: Female

DRUGS (4)
  1. ICATIBANT ACETATE [Suspect]
     Active Substance: ICATIBANT ACETATE
     Indication: Complement deficiency disease
     Dosage: FREQUENCY : AS DIRECTED;?
     Route: 058
     Dates: start: 202203
  2. BERINERT KIT [Concomitant]
  3. TAKHZYRO PFS [Concomitant]
  4. DUPIXENT PFS (S-PK) [Concomitant]

REACTIONS (3)
  - Weight decreased [None]
  - Hereditary angioedema [None]
  - Systemic lupus erythematosus [None]
